FAERS Safety Report 6231841-6 (Version None)
Quarter: 2009Q2

REPORT INFORMATION
  Report Type: 
  Country: None (occurrence: None)
  Receive Date: 20090616
  Receipt Date: 20090511
  Transmission Date: 20091009
  Serious: No
  Sender: FDA-Public Use
  Company Number: US-BAYER-200911476BCC

PATIENT
  Age: 31 Year
  Sex: Female

DRUGS (1)
  1. FINACEA [Suspect]
     Indication: ROSACEA
     Route: 065
     Dates: start: 20090401

REACTIONS (2)
  - ACNE [None]
  - HYPERTRICHOSIS [None]
